FAERS Safety Report 17843004 (Version 2)
Quarter: 2020Q2

REPORT INFORMATION
  Report Type: Spontaneous
  Country: PT (occurrence: PT)
  Receive Date: 20200530
  Receipt Date: 20200610
  Transmission Date: 20200714
  Serious: Yes (Hospitalization, Other)
  Sender: FDA-Public Use
  Company Number: PT-AUROBINDO-AUR-APL-2020-026094

PATIENT
  Age: 53 Year
  Sex: Female

DRUGS (3)
  1. METIBASOL [Suspect]
     Active Substance: METHIMAZOLE
     Indication: HYPERTHYROIDISM
     Dosage: 5 MILLIGRAM, TWO TIMES A DAY
     Route: 065
  2. AZITHROMYCIN FILM-COATED TABLETS [Suspect]
     Active Substance: AZITHROMYCIN ANHYDROUS
     Indication: RESPIRATORY TRACT INFECTION
     Dosage: 500 MILLIGRAM, ONCE A DAY
     Route: 048
  3. CEFIXIME. [Suspect]
     Active Substance: CEFIXIME
     Indication: RESPIRATORY TRACT INFECTION
     Dosage: 400 MILLIGRAM, ONCE A DAY
     Route: 048

REACTIONS (4)
  - Mucocutaneous candidiasis [Recovered/Resolved]
  - Neutropenia [Recovered/Resolved]
  - Treatment failure [Unknown]
  - Drug ineffective [Unknown]
